FAERS Safety Report 4529346-3 (Version None)
Quarter: 2004Q4

REPORT INFORMATION
  Report Type: 
  Country: None (occurrence: None)
  Receive Date: 20041216
  Receipt Date: 20041207
  Transmission Date: 20050328
  Serious: Yes (Other)
  Sender: FDA-Public Use
  Company Number: US-ABBOTT-04P-163-0282737-00

PATIENT
  Sex: Female

DRUGS (6)
  1. HUMIRA [Suspect]
     Indication: PSORIATIC ARTHROPATHY
     Route: 058
     Dates: start: 20040101, end: 20041001
  2. HEPARIN-FRACTION, SODIUM SALT [Concomitant]
     Indication: INFERTILITY
     Route: 048
     Dates: end: 20041001
  3. PROGESTERONE [Concomitant]
     Indication: INFERTILITY
     Route: 048
     Dates: end: 20041001
  4. PROGESTERONE [Concomitant]
     Route: 067
     Dates: end: 20041001
  5. DEXAMETHASONE [Concomitant]
     Indication: INFERTILITY
     Route: 048
     Dates: end: 20041001
  6. ESTRACE [Concomitant]
     Indication: INFERTILITY
     Route: 048
     Dates: end: 20041001

REACTIONS (2)
  - ABORTION SPONTANEOUS [None]
  - DRUG EXPOSURE DURING PREGNANCY [None]
